FAERS Safety Report 7504163-0 (Version None)
Quarter: 2011Q2

REPORT INFORMATION
  Report Type: 
  Country: None (occurrence: None)
  Receive Date: 20110525
  Receipt Date: 20110512
  Transmission Date: 20111010
  Serious: Yes (Hospitalization, Disabling, Other)
  Sender: FDA-Public Use
  Company Number: US-ELI_LILLY_AND_COMPANY-US201004001299

PATIENT
  Sex: Female

DRUGS (18)
  1. FORTEO [Suspect]
     Dosage: 20 UG, DAILY (1/D)
  2. ANALGESICS [Concomitant]
     Indication: PAIN
     Route: 062
  3. SYNTHROID [Concomitant]
     Indication: THYROID DISORDER
     Dosage: 50 UG, DAILY (1/D)
  4. BENAZEPRIL HYDROCHLORIDE [Concomitant]
     Dosage: UNK, DAILY (1/D)
  5. CARDURA [Concomitant]
     Dosage: UNK, EACH MORNING
  6. FORTEO [Suspect]
     Dosage: 20 UG, QD
     Route: 065
     Dates: start: 20110120
  7. FORTEO [Suspect]
     Dosage: 20 UG, QD
     Route: 065
  8. FORTEO [Suspect]
     Dosage: 20 UG, QD
     Route: 065
     Dates: end: 20100301
  9. AMLODIPINE [Concomitant]
     Dosage: UNK, DAILY (1/D)
  10. CALCIUM W/VITAMIN D NOS [Concomitant]
     Dosage: 1200 MG, 2/D
  11. DARVOCET [Concomitant]
  12. ZANTAC [Concomitant]
  13. MULTI-VITAMIN [Concomitant]
     Dosage: UNK, DAILY (1/D)
  14. FORTEO [Suspect]
     Dosage: 20 UG, DAILY (1/D)
     Route: 065
     Dates: end: 20101214
  15. LASIX [Concomitant]
     Dosage: 80 MG, DAILY (1/D)
  16. FORTEO [Suspect]
     Indication: OSTEOPOROSIS
     Dosage: 20 UG, DAILY (1/D)
     Route: 065
     Dates: start: 20091101
  17. FORTEO [Suspect]
     Dosage: 20 UG, QD
     Route: 065
  18. PLAVIX [Concomitant]
     Dosage: 75 MG, DAILY (1/D)

REACTIONS (18)
  - UPPER LIMB FRACTURE [None]
  - THROAT IRRITATION [None]
  - HYPOAESTHESIA [None]
  - MUSCULOSKELETAL STIFFNESS [None]
  - PAIN IN EXTREMITY [None]
  - NERVE INJURY [None]
  - FRACTURE NONUNION [None]
  - POSTOPERATIVE WOUND COMPLICATION [None]
  - HUMERUS FRACTURE [None]
  - DEVICE DISLOCATION [None]
  - HYPERTENSION [None]
  - FALL [None]
  - BACK PAIN [None]
  - PAIN [None]
  - DIZZINESS [None]
  - IMPAIRED HEALING [None]
  - FEAR [None]
  - VISUAL ACUITY REDUCED [None]
